FAERS Safety Report 12405020 (Version 2)
Quarter: 2016Q2

REPORT INFORMATION
  Report Type: Spontaneous
  Country: PT (occurrence: PT)
  Receive Date: 20160525
  Receipt Date: 20160623
  Transmission Date: 20160815
  Serious: Yes (Hospitalization, Other)
  Sender: FDA-Public Use
  Company Number: PT-ALEXION PHARMACEUTICALS INC-A201603461

PATIENT
  Age: 37 Year
  Sex: Male

DRUGS (2)
  1. SOLIRIS [Suspect]
     Active Substance: ECULIZUMAB
     Indication: GLOMERULONEPHRITIS RAPIDLY PROGRESSIVE
     Dosage: 900 MG, QW
     Route: 042
     Dates: start: 20151110
  2. SOLIRIS [Suspect]
     Active Substance: ECULIZUMAB
     Indication: OFF LABEL USE
     Dosage: 1200 MG, Q2W
     Route: 042

REACTIONS (10)
  - Pericardial effusion [Recovered/Resolved]
  - Meningitis meningococcal [Unknown]
  - Streptococcus test positive [Unknown]
  - Ascites [Recovering/Resolving]
  - Epstein-Barr virus test positive [Unknown]
  - Pleural effusion [Recovered/Resolved]
  - Abdominal pain upper [Unknown]
  - Acidosis hyperchloraemic [Unknown]
  - Off label use [Not Recovered/Not Resolved]
  - Condition aggravated [Unknown]

NARRATIVE: CASE EVENT DATE: 20151110
